FAERS Safety Report 7581487-2 (Version None)
Quarter: 2011Q2

REPORT INFORMATION
  Report Type: 
  Country: None (occurrence: None)
  Receive Date: 20110629
  Receipt Date: 20110620
  Transmission Date: 20111010
  Serious: Yes (Other)
  Sender: FDA-Public Use
  Company Number: PHEH2009US18929

PATIENT
  Sex: Female

DRUGS (5)
  1. CHEMOTHERAPEUTICS NOS [Concomitant]
  2. RADIATION [Concomitant]
  3. HERCEPTIN [Concomitant]
  4. AREDIA [Suspect]
     Indication: METASTASES TO BONE
     Dosage: 90 MG, QMO
     Route: 042
     Dates: start: 19980101
  5. XELODA [Concomitant]

REACTIONS (20)
  - LIVER FUNCTION TEST ABNORMAL [None]
  - PALMAR-PLANTAR ERYTHRODYSAESTHESIA SYNDROME [None]
  - EPIGASTRIC DISCOMFORT [None]
  - PYREXIA [None]
  - INTERVERTEBRAL DISC DEGENERATION [None]
  - BONE PAIN [None]
  - PAIN IN EXTREMITY [None]
  - HOT FLUSH [None]
  - SCOLIOSIS [None]
  - ALOPECIA [None]
  - DYSPNOEA [None]
  - HAEMATOMA [None]
  - TENDERNESS [None]
  - ADNEXA UTERI MASS [None]
  - NEOPLASM MALIGNANT [None]
  - PARAESTHESIA [None]
  - VISION BLURRED [None]
  - NEOPLASM PROGRESSION [None]
  - THROMBOCYTOPENIA [None]
  - CONSTIPATION [None]
